FAERS Safety Report 7905242-6 (Version None)
Quarter: 2011Q4

REPORT INFORMATION
  Report Type: 
  Country: None (occurrence: None)
  Receive Date: 20111109
  Receipt Date: 20111108
  Transmission Date: 20120403
  Serious: Yes (Life-Threatening, Hospitalization)
  Sender: FDA-Public Use
  Company Number: IT-BAYER-2011-107994

PATIENT
  Age: 57 Year
  Sex: Female

DRUGS (1)
  1. ULTRAVIST 150 [Suspect]
     Indication: COMPUTERISED TOMOGRAM ABDOMEN
     Dosage: 120 ML, ONCE
     Route: 042
     Dates: start: 20111028, end: 20111028

REACTIONS (5)
  - DYSPNOEA [None]
  - FACE OEDEMA [None]
  - TONGUE OEDEMA [None]
  - OEDEMA [None]
  - URTICARIA [None]
